FAERS Safety Report 5813707-6 (Version None)
Quarter: 2008Q3

REPORT INFORMATION
  Report Type: 
  Country: None (occurrence: None)
  Receive Date: 20080717
  Receipt Date: 20080709
  Transmission Date: 20090109
  Serious: Yes (Death, Other)
  Sender: FDA-Public Use
  Company Number: ES-ROCHE-575514

PATIENT
  Age: 70 Year
  Sex: Male

DRUGS (4)
  1. TORSEMIDE [Suspect]
     Route: 065
  2. DILTIAZEM HCL [Concomitant]
  3. LOVASTATIN [Concomitant]
  4. FUROSEMIDE [Concomitant]

REACTIONS (3)
  - CARDIAC FAILURE [None]
  - LEUKOCYTOCLASTIC VASCULITIS [None]
  - RENAL FAILURE ACUTE [None]
